FAERS Safety Report 21389766 (Version 1)
Quarter: 2022Q3

REPORT INFORMATION
  Report Type: Spontaneous
  Country: ES (occurrence: ES)
  Receive Date: 20220929
  Receipt Date: 20220929
  Transmission Date: 20221027
  Serious: Yes (Other)
  Sender: FDA-Public Use
  Company Number: None

PATIENT
  Age: 59 Year
  Sex: Female
  Weight: 93 kg

DRUGS (5)
  1. SACUBITRIL\VALSARTAN [Suspect]
     Active Substance: SACUBITRIL\VALSARTAN
     Indication: Cardiac failure
     Dosage: UNK (56 COMPRIMIDOS)
     Route: 048
     Dates: start: 20200127
  2. ATORVASTATINA ABEX [Concomitant]
     Indication: Cardiac failure
     Dosage: UNK UNK, QD (1-0-0)
     Route: 065
     Dates: start: 20200127
  3. LEVOTHYROXINE SODIUM [Concomitant]
     Active Substance: LEVOTHYROXINE SODIUM
     Indication: Hypothyroidism
     Dosage: UNK UNK, QD (1-0-0) (100 COMPRIMIDOS)
     Route: 065
     Dates: start: 20050921
  4. IVABRADINE HYDROCHLORIDE [Concomitant]
     Active Substance: IVABRADINE HYDROCHLORIDE
     Indication: Cardiac failure
     Dosage: UNK UNK, BID (1-0-1) (56 COMPRIMIDOS)
     Route: 065
     Dates: start: 20200127
  5. ANAFRANIL [Concomitant]
     Active Substance: CLOMIPRAMINE HYDROCHLORIDE
     Indication: Depression
     Dosage: UNK UNK, BID (1-0-1) (28 COMPRIMIDOS)
     Route: 065
     Dates: start: 20110520

REACTIONS (2)
  - Abdominal pain [Recovered/Resolved]
  - Diarrhoea [Recovered/Resolved]

NARRATIVE: CASE EVENT DATE: 20200205
